FAERS Safety Report 26217734 (Version 1)
Quarter: 2025Q4

REPORT INFORMATION
  Report Type: Spontaneous
  Country: CH (occurrence: CH)
  Receive Date: 20251231
  Receipt Date: 20251231
  Transmission Date: 20260117
  Serious: Yes (Death)
  Sender: CSL BEHRING
  Company Number: CH-BEH-2025230580

PATIENT
  Age: 76 Year
  Sex: Male

DRUGS (3)
  1. PRIVIGEN [Suspect]
     Active Substance: HUMAN IMMUNOGLOBULIN G
     Indication: Sepsis
     Dosage: UNK
     Route: 065
     Dates: start: 20241110, end: 20241112
  2. HYDROCORTISONE [Concomitant]
     Active Substance: HYDROCORTISONE
     Indication: Sepsis
  3. HYDROCORTISONE [Concomitant]
     Active Substance: HYDROCORTISONE
     Indication: Sepsis

REACTIONS (3)
  - Multiple organ dysfunction syndrome [Fatal]
  - Necrotising soft tissue infection [Fatal]
  - Off label use [Unknown]
